FAERS Safety Report 10727024 (Version 1)
Quarter: 2015Q1

REPORT INFORMATION
  Report Type: Spontaneous
  Country: US (occurrence: None)
  Receive Date: 20150120
  Receipt Date: 20150120
  Transmission Date: 20150721
  Serious: No
  Sender: FDA-Public Use
  Company Number: DL2014-1043

PATIENT
  Age: 26 Year
  Sex: Female

DRUGS (3)
  1. AZITHROMYCIN [Concomitant]
     Active Substance: AZITHROMYCIN ANHYDROUS
  2. MIFEPRISTONE TABLETS, 200 MG (DANCO LABS) [Suspect]
     Active Substance: MIFEPRISTONE
     Indication: ABORTION INDUCED
     Route: 048
     Dates: start: 20140628
  3. MISOPROSTOL TABLETS, 200 MCG [Suspect]
     Active Substance: MISOPROSTOL
     Route: 002

REACTIONS (2)
  - Haemorrhage [None]
  - Abortion incomplete [None]

NARRATIVE: CASE EVENT DATE: 20140928
